FAERS Safety Report 8879895 (Version 1)
Quarter: 2012Q4

REPORT INFORMATION
  Report Type: 
  Country: US (occurrence: US)
  Receive Date: 20121101
  Receipt Date: 20121101
  Transmission Date: 20130627
  Serious: No
  Sender: FDA-Public Use
  Company Number: US-009507513-1210USA013724

PATIENT
  Sex: Female

DRUGS (1)
  1. AZASITE [Suspect]
     Dosage: 1 Gtt, bid
     Route: 047
     Dates: start: 20120701, end: 20120726

REACTIONS (2)
  - Inappropriate schedule of drug administration [Unknown]
  - No adverse event [Unknown]
